FAERS Safety Report 21711523 (Version 1)
Quarter: 2022Q4

REPORT INFORMATION
  Report Type: Spontaneous
  Country: JP (occurrence: JP)
  Receive Date: 20221212
  Receipt Date: 20221212
  Transmission Date: 20230113
  Serious: Yes (Other)
  Sender: FDA-Public Use
  Company Number: JP-CHUGAI-2022042873

PATIENT
  Age: 5 Decade
  Sex: Male

DRUGS (2)
  1. ACTEMRA [Suspect]
     Active Substance: TOCILIZUMAB
     Indication: Castleman^s disease
     Dosage: ONCE/2WEEKS
     Route: 041
     Dates: start: 202206
  2. ACTEMRA [Suspect]
     Active Substance: TOCILIZUMAB
     Dosage: ONCE/WEEK
     Route: 041
     Dates: start: 2022

REACTIONS (3)
  - Arthralgia [Not Recovered/Not Resolved]
  - C-reactive protein increased [Unknown]
  - Disease progression [Unknown]

NARRATIVE: CASE EVENT DATE: 20220101
